FAERS Safety Report 4902543-0 (Version None)
Quarter: 2006Q1

REPORT INFORMATION
  Report Type: 
  Country: None (occurrence: None)
  Receive Date: 20060202
  Receipt Date: 20060127
  Transmission Date: 20060701
  Serious: Yes (Hospitalization)
  Sender: FDA-Public Use
  Company Number: A044-002-005932

PATIENT
  Age: 86 Year
  Sex: Female
  Weight: 50 kg

DRUGS (4)
  1. ARICEPT [Suspect]
     Indication: DEMENTIA ALZHEIMER'S TYPE
     Dosage: ORAL
     Route: 048
     Dates: start: 20051125, end: 20051205
  2. VERAPAMIL CHORHYDRATE (VERAPAMIL) [Concomitant]
  3. LEVOTHYROXINE SODIUM [Concomitant]
  4. FLUTICASONE, SALMETEROL (SERETIDE) [Concomitant]

REACTIONS (5)
  - BLISTER [None]
  - NECROSIS [None]
  - OEDEMA PERIPHERAL [None]
  - SCAB [None]
  - VASCULITIS [None]
